FAERS Safety Report 8543090-7 (Version None)
Quarter: 2012Q3

REPORT INFORMATION
  Report Type: 
  Country: None (occurrence: None)
  Receive Date: 20120727
  Receipt Date: 20110805
  Transmission Date: 20120928
  Serious: No
  Sender: FDA-Public Use
  Company Number: US-MYLANLABS-2011S1016546

PATIENT
  Sex: Male

DRUGS (3)
  1. THYROID TAB [Suspect]
  2. LEVOTHYROXINE SODIUM [Suspect]
  3. LEVOTHYROXINE SODIUM [Suspect]

REACTIONS (6)
  - FEELING ABNORMAL [None]
  - MOROSE [None]
  - ASTHENIA [None]
  - FEELING OF DESPAIR [None]
  - DISTURBANCE IN SOCIAL BEHAVIOUR [None]
  - FATIGUE [None]
